FAERS Safety Report 21164695 (Version 1)
Quarter: 2022Q3

REPORT INFORMATION
  Report Type: Spontaneous
  Country: US (occurrence: None)
  Receive Date: 20220803
  Receipt Date: 20220803
  Transmission Date: 20221027
  Serious: Yes (Life-Threatening, Hospitalization, Other)
  Sender: FDA-Public Use
  Company Number: US-MLMSERVICE-20220714-3674375-1

PATIENT
  Age: 40 Year
  Sex: Male

DRUGS (4)
  1. EVEROLIMUS [Suspect]
     Active Substance: EVEROLIMUS
     Indication: Immunosuppressant drug therapy
     Dosage: UNKNOWN
     Route: 065
  2. CYCLOSPORINE [Suspect]
     Active Substance: CYCLOSPORINE
     Indication: Immunosuppressant drug therapy
     Dosage: UNKNOWN
     Route: 065
  3. POSACONAZOLE [Concomitant]
     Active Substance: POSACONAZOLE
     Indication: Immunosuppressant drug therapy
     Dosage: UNKNOWN
     Route: 065
  4. DAPSONE [Concomitant]
     Active Substance: DAPSONE
     Indication: Immunosuppressant drug therapy
     Dosage: UNKNOWN
     Route: 065

REACTIONS (5)
  - Carotid arterial embolus [Unknown]
  - Carotid artery occlusion [Unknown]
  - Cerebral haemorrhage [Unknown]
  - Brain oedema [Unknown]
  - Cerebral infarction [Unknown]
